FAERS Safety Report 5389772-X (Version None)
Quarter: 2007Q3

REPORT INFORMATION
  Report Type: 
  Country: None (occurrence: None)
  Receive Date: 20070717
  Receipt Date: 20070711
  Transmission Date: 20080115
  Serious: Yes (Life-Threatening, Hospitalization, Disabling)
  Sender: FDA-Public Use
  Company Number: US-MERCK-0707USA00509

PATIENT
  Age: 9 Year
  Sex: Male
  Weight: 28 kg

DRUGS (3)
  1. SINGULAIR [Suspect]
     Indication: ASTHMA
     Route: 048
     Dates: start: 20060101, end: 20070201
  2. SINGULAIR [Suspect]
     Indication: HYPERSENSITIVITY
     Route: 048
     Dates: start: 20060101, end: 20070201
  3. BACTRIM [Concomitant]
     Route: 065

REACTIONS (7)
  - ADVERSE EVENT [None]
  - BLOOD IMMUNOGLOBULIN E INCREASED [None]
  - PRURITUS [None]
  - REACTION TO FOOD ADDITIVE [None]
  - SKIN ATROPHY [None]
  - SKIN FISSURES [None]
  - SKIN HAEMORRHAGE [None]
